FAERS Safety Report 16304017 (Version 6)
Quarter: 2019Q3

REPORT INFORMATION
  Report Type: Report from Study
  Country: CO (occurrence: CO)
  Receive Date: 20190513
  Receipt Date: 20190809
  Transmission Date: 20191004
  Serious: Yes (Hospitalization, Other)
  Sender: FDA-Public Use
  Company Number: CO-ASTELLAS-2019US007901

PATIENT
  Age: 48 Year
  Sex: Female
  Weight: 48 kg

DRUGS (9)
  1. TACROLIMUS. [Suspect]
     Active Substance: TACROLIMUS
     Indication: RENAL TRANSPLANT
     Dosage: 5 MG (1 CAPSULE), ONCE DAILY
     Route: 048
     Dates: start: 20181112, end: 20190329
  2. TACROLIMUS. [Suspect]
     Active Substance: TACROLIMUS
     Indication: TOXICITY TO VARIOUS AGENTS
     Dosage: 2 MG, ONCE DAILY (2 CAPSULE OF 1MG)
     Route: 048
     Dates: start: 20190429
  3. LOSARTAN. [Concomitant]
     Active Substance: LOSARTAN
     Indication: HYPERTENSION
     Route: 048
  4. OMEPRAZOLE. [Concomitant]
     Active Substance: OMEPRAZOLE
     Indication: PRODUCT USED FOR UNKNOWN INDICATION
     Route: 048
  5. TACROLIMUS. [Suspect]
     Active Substance: TACROLIMUS
     Indication: IMMUNOSUPPRESSANT DRUG LEVEL INCREASED
     Dosage: 3 MG, ONCE DAILY (3 CAPSULE OF 1MG)
     Route: 048
  6. CARVEDILOL. [Concomitant]
     Active Substance: CARVEDILOL
     Indication: CARDIAC DISORDER
     Route: 048
     Dates: start: 20181112
  7. PREDNISOLONE. [Concomitant]
     Active Substance: PREDNISOLONE
     Indication: TRANSPLANT
     Route: 048
     Dates: start: 20181112
  8. TACROLIMUS. [Suspect]
     Active Substance: TACROLIMUS
     Indication: IMMUNOSUPPRESSANT DRUG LEVEL
     Dosage: 3 MG, ONCE DAILY (1 CAPSULE OF 3MG DAILY)
     Route: 048
     Dates: start: 20190330, end: 20190429
  9. MYCOPHENOLATE [Concomitant]
     Active Substance: MYCOPHENOLIC ACID
     Indication: TRANSPLANT
     Dosage: 1080 MG, (720 MG AT MORNING AND 360 MG AT NIGHT) ONCE DAILY
     Route: 048
     Dates: start: 20181112

REACTIONS (24)
  - Toxicity to various agents [Recovered/Resolved]
  - Cystitis [Recovered/Resolved]
  - Immunosuppressant drug level increased [Recovered/Resolved]
  - Immunosuppressant drug level decreased [Recovering/Resolving]
  - Sensory disturbance [Recovered/Resolved]
  - Asthenia [Not Recovered/Not Resolved]
  - Toxicity to various agents [Recovered/Resolved]
  - Urinary tract infection [Not Recovered/Not Resolved]
  - Gastric disorder [Not Recovered/Not Resolved]
  - Dysuria [Recovered/Resolved]
  - Abdominal pain upper [Not Recovered/Not Resolved]
  - Nausea [Recovered/Resolved]
  - Vesicoureteric reflux [Recovered/Resolved]
  - Urinary tract infection [Recovered/Resolved]
  - Urinary tract infection [Recovering/Resolving]
  - Dizziness [Recovered/Resolved]
  - Headache [Not Recovered/Not Resolved]
  - Taste disorder [Recovering/Resolving]
  - Depression [Recovering/Resolving]
  - Cerebral haemorrhage [Recovered/Resolved]
  - Dysuria [Not Recovered/Not Resolved]
  - Chromaturia [Not Recovered/Not Resolved]
  - Back pain [Not Recovered/Not Resolved]
  - Vesicoureteric reflux [Not Recovered/Not Resolved]

NARRATIVE: CASE EVENT DATE: 201902
